FAERS Safety Report 13233027 (Version 1)
Quarter: 2017Q1

REPORT INFORMATION
  Report Type: Spontaneous
  Country: US (occurrence: US)
  Receive Date: 20170214
  Receipt Date: 20170214
  Transmission Date: 20170428
  Serious: No
  Sender: FDA-Public Use
  Company Number: US-CIPLA LTD.-2016US09975

PATIENT

DRUGS (11)
  1. VICTOZA [Concomitant]
     Active Substance: LIRAGLUTIDE
     Indication: DIABETES MELLITUS
     Dosage: 1.8 MG, QD (PREFILLED SYRINGE)
     Route: 065
     Dates: start: 201412
  2. METFORMIN [Concomitant]
     Active Substance: METFORMIN HYDROCHLORIDE
     Indication: DIABETES MELLITUS
     Dosage: 1000 MG, 2 1/2 TABLET IN MORNING AND 1 TABLET IN THE EVENING
     Route: 065
     Dates: start: 200304
  3. LYRICA [Concomitant]
     Active Substance: PREGABALIN
     Indication: NEUROPATHY PERIPHERAL
     Dosage: 225 MG, BID
     Route: 048
  4. BUPROPION XL [Concomitant]
     Active Substance: BUPROPION
     Dosage: 300 MG, ONE PILL, DAILY
     Route: 048
  5. ZETIA [Concomitant]
     Active Substance: EZETIMIBE
     Dosage: 10 MG, DAILY
     Route: 048
  6. GEMFIBROZIL. [Concomitant]
     Active Substance: GEMFIBROZIL
     Dosage: 600 MG, BID
     Route: 048
  7. LANTUS [Concomitant]
     Active Substance: INSULIN GLARGINE
     Indication: DIABETES MELLITUS
     Dosage: 40 UT, IN THE EVENING
     Route: 065
  8. GABAPENTIN. [Suspect]
     Active Substance: GABAPENTIN
     Indication: NEUROPATHY PERIPHERAL
     Dosage: 300 MG, QID
     Route: 065
  9. LOSARTAN POTASSIUM. [Concomitant]
     Active Substance: LOSARTAN POTASSIUM
     Indication: BLOOD PRESSURE MANAGEMENT
     Dosage: 50 MG, QD
     Route: 048
  10. FLUOXETIN HCI [Concomitant]
     Dosage: 20 MG, DAILY
     Route: 048
  11. COLESTIPOL [Concomitant]
     Active Substance: COLESTIPOL
     Indication: HYPERLIPIDAEMIA
     Dosage: 1 G, TWO TABLETS, BID
     Route: 048

REACTIONS (1)
  - Drug ineffective [Unknown]
